FAERS Safety Report 11313696 (Version 1)
Quarter: 2015Q3

REPORT INFORMATION
  Report Type: Spontaneous
  Country: US (occurrence: US)
  Receive Date: 20150727
  Receipt Date: 20150727
  Transmission Date: 20151125
  Serious: No
  Sender: FDA-Public Use
  Company Number: US-ABBVIE-15P-163-1424254-00

PATIENT
  Age: 37 Year
  Sex: Female

DRUGS (1)
  1. SYNTHROID [Suspect]
     Active Substance: LEVOTHYROXINE SODIUM
     Indication: AUTOIMMUNE THYROIDITIS
     Route: 065

REACTIONS (7)
  - Skin hyperpigmentation [Unknown]
  - Constipation [Unknown]
  - Blood triglycerides decreased [Unknown]
  - Night sweats [Unknown]
  - Diarrhoea [Unknown]
  - Blood glucose decreased [Unknown]
  - Nausea [Unknown]
